FAERS Safety Report 7269691-4 (Version None)
Quarter: 2011Q1

REPORT INFORMATION
  Report Type: 
  Country: None (occurrence: None)
  Receive Date: 20110202
  Receipt Date: 20110126
  Transmission Date: 20110831
  Serious: Yes (Death)
  Sender: FDA-Public Use
  Company Number: MX-SANOFI-AVENTIS-2011SA005354

PATIENT
  Age: 59 Year
  Sex: Female

DRUGS (2)
  1. LANTUS [Suspect]
     Indication: TYPE 2 DIABETES MELLITUS
     Route: 058
     Dates: start: 20060101, end: 20100101
  2. ANTINEOPLASTIC AGENTS [Concomitant]
     Indication: OVARIAN CANCER
     Dates: start: 20070101, end: 20100101

REACTIONS (2)
  - METASTASES TO LUNG [None]
  - OVARIAN CANCER METASTATIC [None]
